FAERS Safety Report 11830181 (Version 2)
Quarter: 2016Q1

REPORT INFORMATION
  Report Type: Spontaneous
  Country: HR (occurrence: HR)
  Receive Date: 20151214
  Receipt Date: 20160105
  Transmission Date: 20160525
  Serious: Yes (Death, Other)
  Sender: FDA-Public Use
  Company Number: HR-009507513-1512HRV004011

PATIENT
  Age: 63 Year
  Sex: Female

DRUGS (3)
  1. CANCIDAS [Suspect]
     Active Substance: CASPOFUNGIN ACETATE
     Dosage: 70 MG, UNK
     Route: 065
     Dates: start: 20151007, end: 20151011
  2. COLISTIN [Suspect]
     Active Substance: COLISTIN
     Dosage: 1 MG, TID
     Route: 042
     Dates: start: 20150925, end: 20151011
  3. LINEZOLID. [Suspect]
     Active Substance: LINEZOLID
     Dosage: 600 MG, BID
     Route: 042
     Dates: start: 20150928, end: 20151011

REACTIONS (8)
  - Sepsis [Fatal]
  - Cardiac failure [Fatal]
  - Cardiac arrest [Fatal]
  - Circulatory collapse [Fatal]
  - Multiple organ dysfunction syndrome [Fatal]
  - Renal failure [Fatal]
  - Septic shock [Fatal]
  - Pneumonia [Fatal]

NARRATIVE: CASE EVENT DATE: 2015
